FAERS Safety Report 8830515 (Version 1)
Quarter: 2012Q4

REPORT INFORMATION
  Report Type: 
  Country: US (occurrence: US)
  Receive Date: 20121009
  Receipt Date: 20121009
  Transmission Date: 20130627
  Serious: Yes (Congenital Anomaly)
  Sender: FDA-Public Use
  Company Number: US-SHIRE-ALL1-2012-04598

PATIENT

DRUGS (3)
  1. 433 (CARBAMAZEPINE) [Suspect]
     Indication: PRODUCT USED FOR UNKNOWN INDICATION
     Dosage: 1600 mg, Unknown (at LMP)
     Route: 064
  2. 433 (CARBAMAZEPINE) [Suspect]
     Dosage: 1500 mg, Unknown (sometime before week 26)
     Route: 064
  3. GABAPENTIN [Suspect]
     Indication: PRODUCT USED FOR UNKNOWN INDICATION
     Dosage: 1200 mg, Unknown
     Route: 064

REACTIONS (2)
  - Cleft palate [Unknown]
  - Exposure during pregnancy [Unknown]
